FAERS Safety Report 8859242 (Version 1)
Quarter: 2012Q4

REPORT INFORMATION
  Report Type: Spontaneous
  Country: US (occurrence: None)
  Receive Date: 20121024
  Receipt Date: 20121024
  Transmission Date: 20130627
  Serious: No
  Sender: FDA-Public Use
  Company Number: None

PATIENT

DRUGS (1)
  1. DEXTROAMP-AMPHET. ER [Suspect]
     Indication: ATTENTION DEFICIT DISORDER
     Route: 048
     Dates: start: 20120830, end: 20121023

REACTIONS (5)
  - Product substitution issue [None]
  - Product quality issue [None]
  - Attention deficit/hyperactivity disorder [None]
  - Condition aggravated [None]
  - Drug ineffective [None]
